FAERS Safety Report 6500614-9 (Version None)
Quarter: 2009Q4

REPORT INFORMATION
  Report Type: 
  Country: None (occurrence: None)
  Receive Date: 20091216
  Receipt Date: 20081129
  Transmission Date: 20100525
  Serious: No
  Sender: FDA-Public Use
  Company Number: A0759088A

PATIENT
  Age: 40 Year
  Sex: Female

DRUGS (1)
  1. NICOTINE POLACRILEX [Suspect]
     Indication: DRUG USE FOR UNKNOWN INDICATION

REACTIONS (1)
  - NAUSEA [None]
